FAERS Safety Report 8447161-5 (Version None)
Quarter: 2012Q2

REPORT INFORMATION
  Report Type: 
  Country: None (occurrence: None)
  Receive Date: 20120619
  Receipt Date: 20110901
  Transmission Date: 20120825
  Serious: No
  Sender: FDA-Public Use
  Company Number: US-PFIZER INC-K201101032

PATIENT
  Sex: Female
  Weight: 77.098 kg

DRUGS (2)
  1. LEVOXYL [Suspect]
     Indication: THYROID DISORDER
     Dosage: 200 MG, 1X/DAY
     Route: 048
     Dates: start: 19960101, end: 20110901
  2. VITAMIN TAB [Concomitant]
     Dosage: UNK

REACTIONS (1)
  - COELIAC DISEASE [None]
